FAERS Safety Report 5599317-7 (Version None)
Quarter: 2008Q1

REPORT INFORMATION
  Report Type: 
  Country: None (occurrence: None)
  Receive Date: 20080122
  Receipt Date: 20080110
  Transmission Date: 20080703
  Serious: Yes (Other)
  Sender: FDA-Public Use
  Company Number: US-PFIZER INC-2007095796

PATIENT
  Sex: Male
  Weight: 83.9 kg

DRUGS (5)
  1. CHANTIX [Suspect]
     Indication: SMOKING CESSATION THERAPY
     Dates: start: 20070701, end: 20070801
  2. PROZAC [Suspect]
     Indication: DEPRESSION
     Dates: start: 20071001, end: 20071105
  3. NEXIUM [Concomitant]
  4. ADALAT [Concomitant]
  5. DILTIAZEM HCL [Concomitant]

REACTIONS (21)
  - ALCOHOL USE [None]
  - BACK INJURY [None]
  - BACK PAIN [None]
  - BLOOD PRESSURE ABNORMAL [None]
  - BURSITIS [None]
  - CARPAL TUNNEL SYNDROME [None]
  - DEPRESSION [None]
  - DISSOCIATION [None]
  - HERPES ZOSTER [None]
  - HYPERAESTHESIA [None]
  - HYPOAESTHESIA [None]
  - INTERVERTEBRAL DISC DISORDER [None]
  - MALAISE [None]
  - NAUSEA [None]
  - PARAESTHESIA [None]
  - RADICULOPATHY [None]
  - SEDATION [None]
  - STRESS [None]
  - THROAT TIGHTNESS [None]
  - TREMOR [None]
  - VOMITING [None]
